FAERS Safety Report 15426898 (Version 2)
Quarter: 2019Q1

REPORT INFORMATION
  Report Type: Report from Study
  Country: CO (occurrence: CO)
  Receive Date: 20180925
  Receipt Date: 20190315
  Transmission Date: 20190417
  Serious: Yes (Other)
  Sender: FDA-Public Use
  Company Number: PHHY2018CO015330

PATIENT
  Age: 14 Year
  Sex: Female
  Weight: 48 kg

DRUGS (2)
  1. ILARIS [Suspect]
     Active Substance: CANAKINUMAB
     Indication: SARCOIDOSIS
     Dosage: 150 MG, QMO
     Route: 058
     Dates: start: 20170408
  2. ILARIS [Suspect]
     Active Substance: CANAKINUMAB
     Dosage: UNK
     Route: 065
     Dates: start: 201802

REACTIONS (9)
  - Glaucoma [Not Recovered/Not Resolved]
  - Eye inflammation [Not Recovered/Not Resolved]
  - Sarcoidosis [Unknown]
  - Condition aggravated [Unknown]
  - Joint swelling [Not Recovered/Not Resolved]
  - Skin discolouration [Unknown]
  - Product use in unapproved indication [Not Recovered/Not Resolved]
  - Uveitis [Recovering/Resolving]
  - Intraocular pressure increased [Not Recovered/Not Resolved]

NARRATIVE: CASE EVENT DATE: 20170408
